FAERS Safety Report 24275907 (Version 1)
Quarter: 2024Q3

REPORT INFORMATION
  Report Type: Spontaneous
  Country: US (occurrence: US)
  Receive Date: 20240903
  Receipt Date: 20240903
  Transmission Date: 20241017
  Serious: No
  Sender: MERCK
  Company Number: US-009507513-2408USA010391

PATIENT

DRUGS (1)
  1. WINREVAIR [Suspect]
     Active Substance: SOTATERCEPT-CSRK
     Indication: Pulmonary arterial hypertension
     Dosage: 0.3 MG X2 AND THEN 0.7 MG/UNKNOWN FREQUENCY

REACTIONS (2)
  - Haemoglobin increased [Unknown]
  - Product administered to patient of inappropriate age [Unknown]
